FAERS Safety Report 8069896-9 (Version None)
Quarter: 2012Q1

REPORT INFORMATION
  Report Type: 
  Country: None (occurrence: None)
  Receive Date: 20120125
  Receipt Date: 20120113
  Transmission Date: 20120608
  Serious: Yes (Other)
  Sender: FDA-Public Use
  Company Number: US-ELI_LILLY_AND_COMPANY-US201201000256

PATIENT
  Sex: Female

DRUGS (3)
  1. TRAMADOL HCL [Concomitant]
  2. FORTEO [Suspect]
     Indication: OSTEOPOROSIS
     Dosage: 20 UG, QD
     Route: 065
     Dates: start: 20111215
  3. FORTEO [Suspect]
     Dosage: 20 UG, QD
     Route: 065
     Dates: end: 20111226

REACTIONS (10)
  - DECREASED ACTIVITY [None]
  - NAUSEA [None]
  - MALAISE [None]
  - DRUG DOSE OMISSION [None]
  - LOSS OF CONSCIOUSNESS [None]
  - PAIN IN EXTREMITY [None]
  - DIABETES MELLITUS [None]
  - TYPE 1 DIABETES MELLITUS [None]
  - ARTHRALGIA [None]
  - PAIN [None]
